FAERS Safety Report 15165362 (Version 1)
Quarter: 2018Q3

REPORT INFORMATION
  Report Type: Spontaneous
  Country: NL (occurrence: NL)
  Receive Date: 20180719
  Receipt Date: 20180719
  Transmission Date: 20181010
  Serious: Yes (Other)
  Sender: FDA-Public Use
  Company Number: NL-009507513-1807NLD004703

PATIENT
  Sex: Male

DRUGS (3)
  1. SINEMET CR [Suspect]
     Active Substance: CARBIDOPA\LEVODOPA
     Indication: PARKINSONISM
     Dosage: THREE TABLETS AT NIGHT
     Route: 048
  2. SINEMET [Suspect]
     Active Substance: CARBIDOPA\LEVODOPA
     Indication: PARKINSONISM
     Dosage: 1.5 TO 2 TABLETS, FIVE TIME PER DAY
     Route: 048
  3. DOPAMINE [Concomitant]
     Active Substance: DOPAMINE\DOPAMINE HYDROCHLORIDE
     Dosage: UNK

REACTIONS (3)
  - Barrett^s oesophagus [Unknown]
  - Mucosal hyperaemia [Unknown]
  - On and off phenomenon [Unknown]
